FAERS Safety Report 17492788 (Version 5)
Quarter: 2021Q2

REPORT INFORMATION
  Report Type: Other
  Country: CA (occurrence: CA)
  Receive Date: 20200304
  Receipt Date: 20210422
  Transmission Date: 20210716
  Serious: Yes (Other)
  Sender: FDA-Public Use
  Company Number: CA-ROCHE-2560118

PATIENT
  Age: 41 Year
  Sex: Female

DRUGS (1)
  1. OCREVUS [Suspect]
     Active Substance: OCRELIZUMAB
     Indication: RELAPSING-REMITTING MULTIPLE SCLEROSIS
     Dosage: ON DAY 0, ON DAY 14 AND THEN 600 MG ONCE IN SIX MONTH.
     Route: 042
     Dates: start: 20180820

REACTIONS (1)
  - Biliary colic [Recovering/Resolving]

NARRATIVE: CASE EVENT DATE: 20200214
